FAERS Safety Report 6187809-1 (Version None)
Quarter: 2009Q2

REPORT INFORMATION
  Report Type: 
  Country: None (occurrence: None)
  Receive Date: 20090513
  Receipt Date: 20090505
  Transmission Date: 20091009
  Serious: Yes (Other)
  Sender: FDA-Public Use
  Company Number: US-ELI_LILLY_AND_COMPANY-US200905001020

PATIENT
  Sex: Female

DRUGS (6)
  1. HUMALOG [Suspect]
     Dosage: 40 U, UNK
     Dates: start: 20050101
  2. HUMALOG MIX 75/25 [Suspect]
     Dosage: 20 U, EACH MORNING
  3. HUMALOG MIX 75/25 [Suspect]
     Dosage: 10 U, EACH EVENING
  4. LANTUS [Concomitant]
     Dosage: 34 U, EACH EVENING
  5. AVANDIA [Concomitant]
  6. JANUVIA [Concomitant]

REACTIONS (8)
  - BLOOD GLUCOSE INCREASED [None]
  - CEREBROVASCULAR ACCIDENT [None]
  - DRUG DISPENSING ERROR [None]
  - DRUG INEFFECTIVE [None]
  - GLAUCOMA [None]
  - HEMIPLEGIA [None]
  - INJECTION SITE IRRITATION [None]
  - VISUAL ACUITY REDUCED [None]
